FAERS Safety Report 13747051 (Version 1)
Quarter: 2017Q3

REPORT INFORMATION
  Report Type: Spontaneous
  Country: US (occurrence: US)
  Receive Date: 20170712
  Receipt Date: 20170712
  Transmission Date: 20171127
  Serious: No
  Sender: FDA-Public Use
  Company Number: US-MANNKIND CORPORATION-2017MK000059

PATIENT
  Sex: Male
  Weight: 74.91 kg

DRUGS (2)
  1. AFREZZA [Suspect]
     Active Substance: INSULIN HUMAN
     Dates: start: 201512
  2. AFREZZA [Suspect]
     Active Substance: INSULIN HUMAN
     Indication: TYPE 2 DIABETES MELLITUS
     Dates: start: 201512

REACTIONS (1)
  - Hypoglycaemia [Not Recovered/Not Resolved]
